FAERS Safety Report 5229095-2 (Version None)
Quarter: 2007Q1

REPORT INFORMATION
  Report Type: 
  Country: None (occurrence: None)
  Receive Date: 20070205
  Receipt Date: 20070126
  Transmission Date: 20070707
  Serious: Yes (Death)
  Sender: FDA-Public Use
  Company Number: US-SHR-US-2007-002793

PATIENT
  Sex: Male

DRUGS (1)
  1. MAGNEVIST [Suspect]
     Dosage: 18 ML, 1 DOSE
     Route: 042
     Dates: start: 20070115, end: 20070115

REACTIONS (2)
  - INCREASED UPPER AIRWAY SECRETION [None]
  - LOSS OF CONSCIOUSNESS [None]
